FAERS Safety Report 8014569-1 (Version None)
Quarter: 2011Q4

REPORT INFORMATION
  Report Type: 
  Country: None (occurrence: None)
  Receive Date: 20111229
  Receipt Date: 20111216
  Transmission Date: 20120403
  Serious: Yes (Other)
  Sender: FDA-Public Use
  Company Number: BR-PFIZER INC-2011314690

PATIENT
  Age: 57 Year
  Sex: Male

DRUGS (5)
  1. AMLODIPINE [Concomitant]
     Dosage: 5 MG, UNK
     Dates: start: 20111001
  2. AMOXICILLIN [Suspect]
     Indication: DENTAL IMPLANTATION
     Dosage: 500 MG, UNK
     Route: 048
     Dates: start: 20111101
  3. CELECOXIB [Suspect]
     Indication: DENTAL IMPLANTATION
     Dosage: UNK
     Route: 048
     Dates: start: 20111101
  4. BETAMETHASONE BENZOATE [Suspect]
     Indication: DENTAL IMPLANTATION
     Dosage: 2 MG, UNK
     Route: 048
     Dates: start: 20111101
  5. BENICAR HCT [Suspect]
     Indication: HYPERTENSION
     Dosage: [OLMESARTAN MEDOXOMIL 40 MG/ HYDROCHLOROTHIAZIDE 12.5 MG], ONCE A DAY
     Route: 048
     Dates: start: 20110101

REACTIONS (4)
  - DENTAL IMPLANTATION [None]
  - ANAL FISSURE [None]
  - DRUG INEFFECTIVE [None]
  - BLOOD PRESSURE INCREASED [None]
